FAERS Safety Report 18660065 (Version 1)
Quarter: 2020Q4

REPORT INFORMATION
  Report Type: Spontaneous
  Country: US (occurrence: US)
  Receive Date: 20201223
  Receipt Date: 20201223
  Transmission Date: 20210114
  Serious: Yes (Hospitalization, Other)
  Sender: FDA-Public Use
  Company Number: US-SUNOVION-2020SUN003782

PATIENT
  Age: 21 Year
  Sex: Male

DRUGS (4)
  1. HALDOL [Concomitant]
     Active Substance: HALOPERIDOL
     Dosage: UNK
  2. LATUDA [Suspect]
     Active Substance: LURASIDONE HYDROCHLORIDE
     Indication: SCHIZOAFFECTIVE DISORDER
     Dosage: UNK, TAPERING
     Route: 048
  3. LITHIUM. [Concomitant]
     Active Substance: LITHIUM
     Dosage: UNK
  4. CAPLYTA [Suspect]
     Active Substance: LUMATEPERONE
     Indication: SCHIZOAFFECTIVE DISORDER
     Dosage: 42 MG, QD
     Route: 048

REACTIONS (2)
  - Schizophrenia [Unknown]
  - Off label use [Unknown]
